FAERS Safety Report 21291903 (Version 1)
Quarter: 2022Q3

REPORT INFORMATION
  Report Type: Other
  Country: ZA (occurrence: None)
  Receive Date: 20220904
  Receipt Date: 20220904
  Transmission Date: 20221027
  Serious: Yes (Other)
  Sender: FDA-Public Use
  Company Number: ZA-ROCHE-3167914

PATIENT
  Sex: Female

DRUGS (1)
  1. OCREVUS [Suspect]
     Active Substance: OCRELIZUMAB
     Indication: Primary progressive multiple sclerosis
     Dosage: THEREAFTER EVERY SIX MONTHS
     Route: 041
     Dates: start: 20220620

REACTIONS (19)
  - Photophobia [Unknown]
  - Phonophobia [Unknown]
  - Migraine [Unknown]
  - Hypomania [Unknown]
  - Paraesthesia [Unknown]
  - Vertigo [Unknown]
  - Ill-defined disorder [Unknown]
  - Cerebral disorder [Unknown]
  - Cyst [Unknown]
  - Speech disorder [Unknown]
  - Muscular weakness [Unknown]
  - Gait disturbance [Unknown]
  - Musculoskeletal stiffness [Unknown]
  - Disturbance in attention [Unknown]
  - Memory impairment [Unknown]
  - Constipation [Unknown]
  - Cerebellar syndrome [Unknown]
  - Hyperreflexia [Unknown]
  - Muscle spasticity [Unknown]
